FAERS Safety Report 9545757 (Version 1)
Quarter: 2013Q3

REPORT INFORMATION
  Report Type: Spontaneous
  Country: FR (occurrence: FR)
  Receive Date: 20130923
  Receipt Date: 20130923
  Transmission Date: 20140515
  Serious: Yes (Death, Other)
  Sender: FDA-Public Use
  Company Number: FR-WATSON-2013-16664

PATIENT
  Age: 56 Year
  Sex: Female

DRUGS (7)
  1. VALPROIC ACID (UNKNOWN) [Suspect]
     Indication: GRAND MAL CONVULSION
     Dosage: 750 MG, BID
     Route: 048
     Dates: start: 20130404
  2. ABILIFY [Concomitant]
     Indication: PRODUCT USED FOR UNKNOWN INDICATION
     Dosage: 10 MG, UNK
     Route: 065
  3. TRIMEBUTINE [Concomitant]
     Indication: PRODUCT USED FOR UNKNOWN INDICATION
     Dosage: UNK
     Route: 065
  4. AMOXICILLINE                       /00249602/ [Concomitant]
     Indication: PRODUCT USED FOR UNKNOWN INDICATION
     Dosage: UNK
     Route: 065
  5. CLAVULANIC ACID [Concomitant]
     Indication: PRODUCT USED FOR UNKNOWN INDICATION
     Dosage: UNK
     Route: 065
  6. DUPHALAC                           /00163401/ [Concomitant]
     Indication: PRODUCT USED FOR UNKNOWN INDICATION
     Dosage: UNK
     Route: 065
  7. TRANSIPEG                          /00754501/ [Concomitant]
     Indication: PRODUCT USED FOR UNKNOWN INDICATION
     Dosage: UNK
     Route: 065

REACTIONS (3)
  - Product substitution issue [Fatal]
  - Convulsion [Fatal]
  - Drug ineffective [Fatal]
